FAERS Safety Report 4691121-7 (Version None)
Quarter: 2005Q2

REPORT INFORMATION
  Report Type: 
  Country: None (occurrence: None)
  Receive Date: 20050610
  Receipt Date: 20050530
  Transmission Date: 20051028
  Serious: Yes (Other)
  Sender: FDA-Public Use
  Company Number: 2005081303

PATIENT
  Sex: Female

DRUGS (4)
  1. DETRUSITOL         (TOLTERODINE L-TARTRATE) [Suspect]
     Indication: ILL-DEFINED DISORDER
     Dosage: 4 MG (2 MG, 2 IN 1 D), ORAL
     Route: 048
     Dates: start: 20050429, end: 20050101
  2. SIMVASTATIN [Concomitant]
  3. KARVEA (IRBESARTAN) [Concomitant]
  4. ACIMAX (OMEPRAZOLE) [Concomitant]

REACTIONS (1)
  - HYPERTENSION [None]
